FAERS Safety Report 25629238 (Version 2)
Quarter: 2025Q3

REPORT INFORMATION
  Report Type: Spontaneous
  Country: US (occurrence: US)
  Receive Date: 20250731
  Receipt Date: 20250823
  Transmission Date: 20251021
  Serious: No
  Sender: SANOFI AVENTIS
  Company Number: US-SA-2025SA222461

PATIENT
  Age: 67 Year
  Sex: Female

DRUGS (1)
  1. DUPIXENT [Suspect]
     Active Substance: DUPILUMAB
     Indication: Asthma
     Dosage: 300 MG, QOW
     Route: 058
     Dates: start: 20250715, end: 20250812

REACTIONS (4)
  - Pain [Unknown]
  - Vision blurred [Unknown]
  - Arthralgia [Unknown]
  - Dry eye [Unknown]

NARRATIVE: CASE EVENT DATE: 20250101
